FAERS Safety Report 11082491 (Version 1)
Quarter: 2015Q2

REPORT INFORMATION
  Report Type: Report from Study
  Country: BR (occurrence: BR)
  Receive Date: 20150501
  Receipt Date: 20150501
  Transmission Date: 20150821
  Serious: Yes (Other)
  Sender: FDA-Public Use
  Company Number: ALCN2015BR002712

PATIENT
  Sex: Female
  Weight: 50 kg

DRUGS (3)
  1. TRAVATAN BAC-FREE [Suspect]
     Active Substance: TRAVOPROST
     Indication: CATARACT
  2. TRUSOPT [Concomitant]
     Active Substance: DORZOLAMIDE HYDROCHLORIDE
     Dosage: 1 GTT, QD
     Route: 047
     Dates: start: 201405
  3. TRAVATAN BAC-FREE [Suspect]
     Active Substance: TRAVOPROST
     Indication: GLAUCOMA
     Dosage: 1 GTT, BID
     Route: 047

REACTIONS (1)
  - Cataract [Unknown]
